FAERS Safety Report 7954107-2 (Version None)
Quarter: 2011Q4

REPORT INFORMATION
  Report Type: 
  Country: None (occurrence: None)
  Receive Date: 20111202
  Receipt Date: 20111122
  Transmission Date: 20120403
  Serious: No
  Sender: FDA-Public Use
  Company Number: US-B.I. PHARMACEUTICALS,INC./RIDGEFIELD-2011-BP-26768BP

PATIENT
  Sex: Female

DRUGS (1)
  1. MICARDIS [Suspect]
     Indication: HYPERTENSION
     Route: 048
     Dates: start: 20060101, end: 20060101

REACTIONS (7)
  - VIITH NERVE PARALYSIS [None]
  - MYALGIA [None]
  - BEDRIDDEN [None]
  - NEURALGIA [None]
  - FEELING ABNORMAL [None]
  - ARTHRALGIA [None]
  - PARAESTHESIA [None]
